FAERS Safety Report 5422035-2 (Version None)
Quarter: 2007Q3

REPORT INFORMATION
  Report Type: 
  Country: None (occurrence: None)
  Receive Date: 20070820
  Receipt Date: 20070808
  Transmission Date: 20080115
  Serious: Yes (Congenital Anomaly)
  Sender: FDA-Public Use
  Company Number: 8025774

PATIENT

DRUGS (2)
  1. KEPPRA [Suspect]
     Dosage: TRP
     Route: 064
  2. LAMOTRIGINE [Suspect]
     Dosage: TRP
     Route: 064

REACTIONS (2)
  - CONGENITAL ANOMALY [None]
  - DRUG EXPOSURE DURING PREGNANCY [None]
